FAERS Safety Report 7442129-X (Version None)
Quarter: 2011Q2

REPORT INFORMATION
  Report Type: 
  Country: None (occurrence: None)
  Receive Date: 20110428
  Receipt Date: 20110418
  Transmission Date: 20111010
  Serious: Yes (Other)
  Sender: FDA-Public Use
  Company Number: PHHY2011CA28088

PATIENT
  Sex: Female

DRUGS (2)
  1. SANDOSTATIN LAR [Suspect]
     Indication: ACROMEGALY
     Dosage: 10 MG, EVERY 4 WEEKS
     Route: 030
     Dates: start: 20100823
  2. SANDOSTATIN LAR [Suspect]
     Dates: start: 20101018

REACTIONS (2)
  - BLOOD PRESSURE DECREASED [None]
  - CHOLELITHIASIS [None]
